FAERS Safety Report 5624007-1 (Version None)
Quarter: 2008Q1

REPORT INFORMATION
  Report Type: 
  Country: None (occurrence: None)
  Receive Date: 20080213
  Receipt Date: 20080204
  Transmission Date: 20080703
  Serious: Yes (Hospitalization)
  Sender: FDA-Public Use
  Company Number: US-JNJFOC-20071106416

PATIENT
  Sex: Male
  Weight: 81.19 kg

DRUGS (8)
  1. DURAGESIC-100 [Suspect]
     Dosage: 2X 100UG/HR PATCHES AND 1X 50UG/HR PATCH
     Route: 062
  2. DURAGESIC-100 [Suspect]
     Indication: ABDOMINAL PAIN UPPER
     Dosage: 4X 100UG/HR PATCHES AND 1X 50UG/HR PATCH
     Route: 062
  3. DURAGESIC-100 [Suspect]
     Indication: PAIN
     Route: 062
  4. VIOKASE [Concomitant]
     Indication: PANCREATITIS
     Dosage: SINCE 1990'S
     Route: 048
  5. XANAX [Concomitant]
     Indication: ANXIETY
     Dosage: SINCE 1980'S
     Route: 048
  6. ATENOLOL [Concomitant]
     Indication: BLOOD PRESSURE
     Dosage: SINCE 1990'S
     Route: 048
  7. TRAZODONE HCL [Concomitant]
     Indication: SLEEP DISORDER
     Dosage: SINCE 1990'S
     Route: 048
  8. STELAZINE [Concomitant]
     Indication: ANXIETY
     Dosage: SINCE 1990'S
     Route: 048

REACTIONS (8)
  - ANOREXIA [None]
  - DEPRESSION [None]
  - HERPES ZOSTER [None]
  - INADEQUATE ANALGESIA [None]
  - INCORRECT DRUG ADMINISTRATION DURATION [None]
  - PAIN [None]
  - PANCREATITIS [None]
  - WEIGHT DECREASED [None]
